FAERS Safety Report 24909718 (Version 1)
Quarter: 2025Q1

REPORT INFORMATION
  Report Type: Spontaneous
  Country: US (occurrence: None)
  Receive Date: 20250130
  Receipt Date: 20250130
  Transmission Date: 20250409
  Serious: Yes (Hospitalization)
  Sender: FDA-CTU
  Company Number: None

PATIENT
  Sex: Female

DRUGS (1)
  1. HUMIRA [Suspect]
     Active Substance: ADALIMUMAB
     Indication: Hidradenitis
     Dosage: INJECT 40MG (ONE PEN) UNDER THE SKIN (SUBCUTANEOUS INJECTION) EVERY WEEK.
     Route: 058
     Dates: start: 20240416

REACTIONS (3)
  - Stress [None]
  - Infection [None]
  - Intentional dose omission [None]
